FAERS Safety Report 7083771-8 (Version None)
Quarter: 2010Q4

REPORT INFORMATION
  Report Type: 
  Country: None (occurrence: None)
  Receive Date: 20101104
  Receipt Date: 20101025
  Transmission Date: 20110411
  Serious: Yes (Hospitalization, Other)
  Sender: FDA-Public Use
  Company Number: US-MERCK-1003USA01845

PATIENT
  Age: 77 Year
  Sex: Female
  Weight: 42 kg

DRUGS (5)
  1. FOSAMAX [Suspect]
     Indication: OSTEOPOROSIS
     Route: 048
     Dates: start: 20050701, end: 20070701
  2. FOSAMAX [Suspect]
     Route: 048
     Dates: start: 20050701, end: 20070701
  3. PRINIVIL [Concomitant]
     Route: 048
     Dates: end: 20050719
  4. NORVASC [Concomitant]
     Route: 048
     Dates: end: 20050719
  5. HYDROCHLOROTHIAZIDE [Concomitant]
     Route: 048
     Dates: end: 20050719

REACTIONS (74)
  - ABDOMINAL BRUIT [None]
  - ACUTE CORONARY SYNDROME [None]
  - ADVERSE DRUG REACTION [None]
  - ANGINA UNSTABLE [None]
  - ANTICOAGULANT THERAPY [None]
  - AORTIC ARTERIOSCLEROSIS [None]
  - AORTIC EMBOLUS [None]
  - AORTIC OCCLUSION [None]
  - ASTHENIA [None]
  - ATELECTASIS [None]
  - ATRIAL FIBRILLATION [None]
  - BUNDLE BRANCH BLOCK RIGHT [None]
  - CACHEXIA [None]
  - CARDIAC FAILURE CONGESTIVE [None]
  - CARDIAC MURMUR [None]
  - CARDIOMEGALY [None]
  - CAROTID ARTERY STENOSIS [None]
  - CAROTID BRUIT [None]
  - CEREBROVASCULAR ACCIDENT [None]
  - CEREBROVASCULAR DISORDER [None]
  - CHEST PAIN [None]
  - CORONARY ARTERY DISEASE [None]
  - DEPRESSION [None]
  - DIARRHOEA [None]
  - DIZZINESS [None]
  - DYSPHAGIA [None]
  - DYSPNOEA [None]
  - EFFUSION [None]
  - FATIGUE [None]
  - FEMORAL BRUIT [None]
  - GASTROINTESTINAL DISORDER [None]
  - GINGIVAL DISORDER [None]
  - HERPES ZOSTER [None]
  - HYPERTENSION [None]
  - HYPERTRIGLYCERIDAEMIA [None]
  - HYPOAESTHESIA [None]
  - HYPOAESTHESIA FACIAL [None]
  - HYPOTENSION [None]
  - HYPOVOLAEMIA [None]
  - IMPAIRED HEALING [None]
  - INSOMNIA [None]
  - INTERMITTENT CLAUDICATION [None]
  - LATEX ALLERGY [None]
  - LEFT VENTRICULAR HYPERTROPHY [None]
  - LERICHE SYNDROME [None]
  - LUNG NEOPLASM [None]
  - MYOCARDIAL INFARCTION [None]
  - NAIL DISORDER [None]
  - NAUSEA [None]
  - ORTHOSTATIC HYPOTENSION [None]
  - OSTEOARTHRITIS [None]
  - OSTEONECROSIS OF JAW [None]
  - PAIN [None]
  - PALLOR [None]
  - PATELLOFEMORAL PAIN SYNDROME [None]
  - PEPTIC ULCER [None]
  - PERIPHERAL VASCULAR DISORDER [None]
  - PHARYNGEAL CYST [None]
  - PSYCHIATRIC SYMPTOM [None]
  - RESPIRATORY FAILURE [None]
  - SALIVARY GLAND MASS [None]
  - SKIN DISORDER [None]
  - SKIN ULCER [None]
  - STOMATITIS [None]
  - SUBCUTANEOUS ABSCESS [None]
  - SUICIDAL IDEATION [None]
  - TOOTH ABSCESS [None]
  - TRANSIENT ISCHAEMIC ATTACK [None]
  - URINARY TRACT INFECTION [None]
  - VASCULAR CALCIFICATION [None]
  - VASCULAR OCCLUSION [None]
  - VENTRICULAR EXTRASYSTOLES [None]
  - VERTIGO [None]
  - VOMITING [None]
